FAERS Safety Report 8889924 (Version 1)
Quarter: 2012Q4

REPORT INFORMATION
  Report Type: 
  Country: US (occurrence: US)
  Receive Date: 20121107
  Receipt Date: 20121107
  Transmission Date: 20130627
  Serious: Yes (Hospitalization, Other)
  Sender: FDA-Public Use
  Company Number: US-PFIZER INC-2012274293

PATIENT
  Sex: Female
  Weight: 78.91 kg

DRUGS (1)
  1. VFEND [Suspect]
     Indication: COCCIDIOIDOMYCOSIS
     Dosage: UNK

REACTIONS (3)
  - Intracranial pressure increased [Unknown]
  - Headache [Unknown]
  - Malaise [Unknown]
